FAERS Safety Report 6421632-5 (Version None)
Quarter: 2009Q4

REPORT INFORMATION
  Report Type: 
  Country: None (occurrence: None)
  Receive Date: 20091030
  Receipt Date: 20091021
  Transmission Date: 20100525
  Serious: Yes (Other)
  Sender: FDA-Public Use
  Company Number: US-NOVOPROD-291748

PATIENT
  Age: 78 Year
  Sex: Female
  Weight: 82.993 kg

DRUGS (1)
  1. NOVOLIN 70/30 [Suspect]
     Indication: TYPE 2 DIABETES MELLITUS
     Route: 058
     Dates: start: 19970101

REACTIONS (1)
  - RENAL FAILURE [None]
